FAERS Safety Report 9757459 (Version 1)
Quarter: 2013Q4

REPORT INFORMATION
  Report Type: Spontaneous
  Country: CA (occurrence: CA)
  Receive Date: 20131215
  Receipt Date: 20131215
  Transmission Date: 20140711
  Serious: Yes (Other)
  Sender: FDA-Public Use
  Company Number: CA-TEVA-450415USA

PATIENT
  Age: 69 Year
  Sex: Female
  Weight: 65.83 kg

DRUGS (1)
  1. CARBAMAZEPINE [Suspect]
     Dosage: 200MG-400MG DAILY
     Route: 048
     Dates: start: 20131201, end: 20131209

REACTIONS (3)
  - Coeliac disease [Unknown]
  - Constipation [Unknown]
  - Swelling [Unknown]
